FAERS Safety Report 9354796 (Version 2)
Quarter: 2014Q1

REPORT INFORMATION
  Report Type: Spontaneous
  Country: US (occurrence: US)
  Receive Date: 20130619
  Receipt Date: 20140115
  Transmission Date: 20141002
  Serious: Yes (Hospitalization)
  Sender: FDA-Public Use
  Company Number: US-ROCHE-1238017

PATIENT
  Sex: Female
  Weight: 82.6 kg

DRUGS (9)
  1. XOLAIR [Suspect]
     Indication: PRODUCT USED FOR UNKNOWN INDICATION
     Route: 065
  2. XOLAIR [Suspect]
     Route: 065
  3. PREDNISOLONE [Concomitant]
  4. SYMBICORT [Concomitant]
  5. RANITIDINE [Concomitant]
  6. FAMCICLOVIR [Concomitant]
  7. FOLIC ACID [Concomitant]
  8. CETRIZINE [Concomitant]
  9. FEXOFENADINE [Concomitant]

REACTIONS (3)
  - Urinary tract infection [Unknown]
  - Asthma [Unknown]
  - Pregnancy [Unknown]
